FAERS Safety Report 4774891-9 (Version None)
Quarter: 2005Q3

REPORT INFORMATION
  Report Type: 
  Country: None (occurrence: None)
  Receive Date: 20050919
  Receipt Date: 20041203
  Transmission Date: 20060218
  Serious: Yes (Life-Threatening, Hospitalization)
  Sender: FDA-Public Use
  Company Number: 2004102261

PATIENT
  Age: 16 Year
  Sex: Female
  Weight: 145 kg

DRUGS (4)
  1. ZOLOFT [Suspect]
     Indication: MAJOR DEPRESSION
  2. ALBUTEROL [Concomitant]
  3. ZYRTEC [Concomitant]
  4. MONTELUKAST (MONTELUKAST) [Concomitant]

REACTIONS (27)
  - AKATHISIA [None]
  - ANGER [None]
  - ANXIETY [None]
  - ARTHRALGIA [None]
  - BLOOD UREA DECREASED [None]
  - FACIAL BONES FRACTURE [None]
  - FATIGUE [None]
  - FEMORAL NECK FRACTURE [None]
  - FLAT AFFECT [None]
  - HAEMATOCRIT DECREASED [None]
  - HAEMOGLOBIN DECREASED [None]
  - INTENTIONAL SELF-INJURY [None]
  - JAW FRACTURE [None]
  - LOSS OF CONSCIOUSNESS [None]
  - MALNUTRITION [None]
  - MOBILITY DECREASED [None]
  - MULTIPLE FRACTURES [None]
  - PAIN [None]
  - PAIN IN EXTREMITY [None]
  - PARALYSIS [None]
  - PELVIC FRACTURE [None]
  - PLATELET COUNT INCREASED [None]
  - ROAD TRAFFIC ACCIDENT [None]
  - SUICIDE ATTEMPT [None]
  - TRAUMATIC BRAIN INJURY [None]
  - WHITE BLOOD CELL COUNT INCREASED [None]
  - WOUND [None]
